FAERS Safety Report 10229663 (Version 1)
Quarter: 2014Q2

REPORT INFORMATION
  Report Type: Spontaneous
  Country: US (occurrence: US)
  Receive Date: 20140611
  Receipt Date: 20140611
  Transmission Date: 20141212
  Serious: Yes (Other)
  Sender: FDA-Public Use
  Company Number: US-JNJFOC-20140601987

PATIENT
  Age: 57 Year
  Sex: Female

DRUGS (8)
  1. XARELTO [Suspect]
     Indication: DEEP VEIN THROMBOSIS
     Route: 048
     Dates: start: 20140527
  2. LEVOTHYROXINE [Concomitant]
     Route: 065
  3. SINGULAIR [Concomitant]
     Route: 065
  4. NEXIUM [Concomitant]
     Route: 065
  5. PROVENTIL [Concomitant]
     Route: 065
  6. CLARITIN [Concomitant]
     Route: 065
  7. FISH OIL [Concomitant]
     Route: 065
  8. CALCIUM [Concomitant]
     Route: 065

REACTIONS (3)
  - Micturition urgency [Not Recovered/Not Resolved]
  - Urinary tract infection [Unknown]
  - Drug dose omission [Unknown]
